FAERS Safety Report 9110130 (Version 2)
Quarter: 2014Q1

REPORT INFORMATION
  Report Type: Report from Study
  Country: US (occurrence: US)
  Receive Date: 20130222
  Receipt Date: 20140130
  Transmission Date: 20141002
  Serious: Yes (Other)
  Sender: FDA-Public Use
  Company Number: US-PURDUE-USA-2013-0099003

PATIENT
  Age: 45 Year
  Sex: Female

DRUGS (2)
  1. OXYCONTIN (NDA 22-272) [Suspect]
     Indication: SPINAL COLUMN INJURY
     Dosage: 40 MG, Q12H
  2. OXYCONTIN (NDA 22-272) [Suspect]
     Dosage: 60 MG, Q12H
     Route: 048

REACTIONS (3)
  - Spinal compression fracture [Not Recovered/Not Resolved]
  - Sensation of pressure [Not Recovered/Not Resolved]
  - Pain [Not Recovered/Not Resolved]
